FAERS Safety Report 7117530-4 (Version None)
Quarter: 2010Q4

REPORT INFORMATION
  Report Type: 
  Country: None (occurrence: None)
  Receive Date: 20101122
  Receipt Date: 20101112
  Transmission Date: 20110411
  Serious: Yes (Death, Hospitalization)
  Sender: FDA-Public Use
  Company Number: US-BAXTER-2010BH027292

PATIENT
  Age: 66 Year
  Sex: Female

DRUGS (3)
  1. DIANEAL [Suspect]
     Indication: PERITONEAL DIALYSIS
     Route: 033
     Dates: end: 20101021
  2. DIANEAL [Suspect]
     Route: 033
     Dates: start: 20101025, end: 20101029
  3. ANTIBIOTICS [Concomitant]
     Indication: PERITONITIS
     Route: 065
     Dates: start: 20101019

REACTIONS (7)
  - ASTHENIA [None]
  - DIARRHOEA [None]
  - MESENTERIC OCCLUSION [None]
  - NAUSEA [None]
  - PERITONITIS BACTERIAL [None]
  - SEPSIS [None]
  - VOMITING [None]
